FAERS Safety Report 20954783 (Version 4)
Quarter: 2022Q3

REPORT INFORMATION
  Report Type: Report from Study
  Country: JP (occurrence: JP)
  Receive Date: 20220614
  Receipt Date: 20220713
  Transmission Date: 20221027
  Serious: Yes (Hospitalization)
  Sender: FDA-Public Use
  Company Number: JP-ABBVIE-22K-087-4428140-00

PATIENT
  Age: 35 Year
  Sex: Female

DRUGS (15)
  1. SKYRIZI [Suspect]
     Active Substance: RISANKIZUMAB-RZAA
     Indication: Psoriasis
     Dosage: 150 MG PER MONTH
     Route: 058
     Dates: start: 20210324, end: 20210421
  2. SKYRIZI [Suspect]
     Active Substance: RISANKIZUMAB-RZAA
     Dosage: 150 MG PER 3 MONTHS
     Route: 058
     Dates: start: 20210421
  3. LOMERIZINE HYDROCHLORIDE [Concomitant]
     Active Substance: LOMERIZINE HYDROCHLORIDE
     Indication: Migraine
     Route: 048
     Dates: start: 2012
  4. HERBALS [Concomitant]
     Active Substance: HERBALS
     Indication: Migraine
     Route: 048
     Dates: start: 2012
  5. HERBAL NOS [Concomitant]
     Active Substance: HERBALS
     Indication: Gastritis prophylaxis
     Route: 048
     Dates: start: 2012
  6. ZOLMITRIPTAN [Concomitant]
     Active Substance: ZOLMITRIPTAN
     Indication: Migraine
     Dosage: AS REQUIRED
     Route: 048
     Dates: start: 2012
  7. DULOXETINE HYDROCHLORIDE [Concomitant]
     Active Substance: DULOXETINE HYDROCHLORIDE
     Indication: Psoriatic arthropathy
     Route: 048
  8. ETHYL LOFLAZEPATE [Concomitant]
     Active Substance: ETHYL LOFLAZEPATE
     Indication: Panic disorder
     Route: 048
     Dates: start: 2005
  9. VALPROATE SODIUM [Concomitant]
     Active Substance: VALPROATE SODIUM
     Indication: Migraine
     Route: 048
     Dates: start: 2012
  10. ALPRAZOLAM [Concomitant]
     Active Substance: ALPRAZOLAM
     Indication: Panic disorder
     Dosage: AS REQUIRED.
     Dates: start: 2005
  11. ACETAMINOPHEN [Concomitant]
     Active Substance: ACETAMINOPHEN
     Indication: Psoriatic arthropathy
     Route: 048
     Dates: start: 202204
  12. CELECOXIB [Concomitant]
     Active Substance: CELECOXIB
     Indication: Psoriatic arthropathy
     Route: 048
     Dates: start: 202204
  13. METHYLCOBALAMIN [Concomitant]
     Active Substance: METHYLCOBALAMIN
     Indication: Neuralgia
     Route: 048
     Dates: start: 202204
  14. MIROGABALIN BESILATE [Concomitant]
     Indication: Neuralgia
     Route: 048
     Dates: start: 202204
  15. CABERGOLINE [Concomitant]
     Active Substance: CABERGOLINE
     Indication: Pituitary tumour benign
     Route: 048
     Dates: start: 2012

REACTIONS (1)
  - Developmental hip dysplasia [Recovering/Resolving]

NARRATIVE: CASE EVENT DATE: 20220415
